FAERS Safety Report 6765220-X (Version None)
Quarter: 2010Q2

REPORT INFORMATION
  Report Type: 
  Country: None (occurrence: None)
  Receive Date: 20100610
  Receipt Date: 20100610
  Transmission Date: 20101027
  Serious: Yes (Hospitalization)
  Sender: FDA-Public Use
  Company Number: None

PATIENT
  Sex: Male
  Weight: 133.9 kg

DRUGS (2)
  1. CARBOPLATIN [Suspect]
     Dosage: 0 MG
  2. TAXOL [Suspect]
     Dosage: 0 MG

REACTIONS (4)
  - CHILLS [None]
  - HAEMOGLOBIN DECREASED [None]
  - NEUTROPENIA [None]
  - PYREXIA [None]
